FAERS Safety Report 4384635-0 (Version None)
Quarter: 2004Q2

REPORT INFORMATION
  Report Type: 
  Country: None (occurrence: None)
  Receive Date: 20040625
  Receipt Date: 20031112
  Transmission Date: 20050107
  Serious: No
  Sender: FDA-Public Use
  Company Number: US-BRISTOL-MYERS SQUIBB COMPANY-12433694

PATIENT
  Age: 75 Year
  Sex: Female
  Weight: 54 kg

DRUGS (8)
  1. SINEMET CR [Suspect]
     Indication: PARKINSON'S DISEASE
     Dosage: EXP 11-SEP-04
     Route: 048
  2. REQUIP [Concomitant]
  3. COZAAR [Concomitant]
  4. PACERONE [Concomitant]
  5. HYDROCHLOROTHIAZIDE [Concomitant]
  6. PRAVACHOL [Concomitant]
  7. VITAMIN E [Concomitant]
  8. ANTIHYPERTENSIVE [Concomitant]

REACTIONS (1)
  - THERAPEUTIC RESPONSE DELAYED [None]
